FAERS Safety Report 5086869-9 (Version None)
Quarter: 2006Q3

REPORT INFORMATION
  Report Type: 
  Country: None (occurrence: None)
  Receive Date: 20060818
  Receipt Date: 20060801
  Transmission Date: 20061208
  Serious: Yes (Other)
  Sender: FDA-Public Use
  Company Number: CHPA2006US07601

PATIENT
  Age: 58 Year
  Sex: Male
  Weight: 72.6 kg

DRUGS (2)
  1. NICOTINE [Suspect]
     Indication: SMOKING CESSATION THERAPY
     Dosage: 21 MG QD TRANSDERMAL
     Route: 062
     Dates: start: 20060730, end: 20060730
  2. BUPROPION HCL [Concomitant]

REACTIONS (7)
  - ANXIETY [None]
  - CHEST DISCOMFORT [None]
  - DRUG TOXICITY [None]
  - DRUG WITHDRAWAL SYNDROME [None]
  - DYSPNOEA [None]
  - HYPOAESTHESIA [None]
  - PANIC ATTACK [None]
